FAERS Safety Report 7235186-7 (Version None)
Quarter: 2011Q1

REPORT INFORMATION
  Report Type: 
  Country: None (occurrence: None)
  Receive Date: 20110120
  Receipt Date: 20110114
  Transmission Date: 20110831
  Serious: Yes (Hospitalization, Other)
  Sender: FDA-Public Use
  Company Number: IT-BRISTOL-MYERS SQUIBB COMPANY-15280076

PATIENT
  Age: 58 Year
  Sex: Female

DRUGS (6)
  1. ORENCIA [Suspect]
     Dosage: INTERRUPTED AND RESTARTED
     Dates: start: 20080501
  2. EUTIROX [Concomitant]
     Dosage: 1TABS SINCE MORE THAN 5YRS EUTIROX 50MCG 1DF:1TAB
  3. ASA [Concomitant]
     Dosage: 1DF:100MF,1TABS SINCE MORE THAN 5YRS
  4. DELTACORTENE [Concomitant]
     Dosage: 1DF:1/2 TABS DELTACORTENE 25MG
     Dates: start: 20080501
  5. DICLOREUM [Concomitant]
     Dosage: 1TABS SINCE 2 YRS DICLOREUM 150MG 1DF:1TAB
  6. VALPRESSION [Concomitant]
     Dosage: 1TABS SINCE 7YRS 1DF:1TAB VALPRESSION 160MG

REACTIONS (1)
  - ANGINA PECTORIS [None]
